FAERS Safety Report 20719291 (Version 1)
Quarter: 2022Q2

REPORT INFORMATION
  Report Type: Spontaneous
  Country: NL (occurrence: NL)
  Receive Date: 20220418
  Receipt Date: 20220418
  Transmission Date: 20220721
  Serious: Yes (Hospitalization, Other)
  Sender: FDA-Public Use
  Company Number: NL-MLMSERVICE-20220406-3488735-1

PATIENT
  Age: 56 Year
  Sex: Female

DRUGS (5)
  1. PACLITAXEL [Interacting]
     Active Substance: PACLITAXEL
     Indication: HER2 positive breast cancer
     Dosage: 1 CYCLICAL, 75% OF THE ORIGINAL PACLITAXEL DOSE
  2. LOPINAVIR\RITONAVIR [Interacting]
     Active Substance: LOPINAVIR\RITONAVIR
     Indication: HIV infection
     Dosage: LOPINAVIR 800 MG/ RITONAVIR 200 MG
  3. TRASTUZUMAB [Concomitant]
     Active Substance: TRASTUZUMAB
     Indication: HER2 positive breast cancer
     Dosage: 6, 8 MG/KG LOADING DOSE EVERY 3 WEEKS
     Dates: start: 2020
  4. LAMIVUDINE [Concomitant]
     Active Substance: LAMIVUDINE
     Indication: HIV infection
  5. PERTUZUMAB [Concomitant]
     Active Substance: PERTUZUMAB
     Indication: HER2 positive breast cancer
     Dosage: 420, 840 MG LOADING DOSE, EVERY 3 WEEKS
     Dates: start: 20200101

REACTIONS (3)
  - Pancytopenia [Recovered/Resolved]
  - Drug interaction [Unknown]
  - Toxicity to various agents [Recovered/Resolved]
